FAERS Safety Report 6861213-2 (Version None)
Quarter: 2010Q3

REPORT INFORMATION
  Report Type: 
  Country: None (occurrence: None)
  Receive Date: 20100720
  Receipt Date: 20100714
  Transmission Date: 20110219
  Serious: Yes (Death, Hospitalization, Other)
  Sender: FDA-Public Use
  Company Number: PHHY2010JP46451

PATIENT
  Sex: Female
  Weight: 70 kg

DRUGS (13)
  1. CGS 20267 T30748+TAB [Suspect]
     Indication: BREAST CANCER
     Dosage: 2.5 MG/DAY
     Route: 048
     Dates: start: 20080311, end: 20090416
  2. OXYCONTIN [Concomitant]
     Indication: BREAST CANCER
     Dosage: 20 MG, UNK
     Route: 048
     Dates: start: 20080313, end: 20080427
  3. OXINORM [Concomitant]
     Indication: BREAST CANCER
     Dosage: 2.5 MG, UNK
     Route: 048
     Dates: start: 20080413
  4. NOVAMIN [Concomitant]
     Indication: BREAST CANCER
     Dosage: 15 MG, UNK
     Route: 048
     Dates: start: 20080313
  5. MAGLAX [Concomitant]
     Indication: BREAST CANCER
     Dosage: 500 MG, UNK
     Route: 048
     Dates: start: 20080327
  6. VOLTAREN [Concomitant]
     Indication: BREAST CANCER
     Dosage: UNK
     Route: 051
     Dates: start: 20090309
  7. LOXONIN [Concomitant]
     Indication: BREAST CANCER
     Dosage: 180 MG, UNK
     Route: 048
     Dates: start: 20090309, end: 20090719
  8. TAKEPRON [Concomitant]
     Indication: PROPHYLAXIS
     Dosage: 15 MG, UNK
     Route: 048
     Dates: start: 20090309
  9. AMOXAN [Concomitant]
     Dosage: 25 MG, UNK
     Route: 048
     Dates: start: 20090309
  10. LASIX [Concomitant]
     Indication: BREAST CANCER
     Dosage: 10 MG, UNK
     Route: 048
     Dates: start: 20090309
  11. GABAPENTIN [Concomitant]
     Indication: BREAST CANCER
     Dosage: 300 MG, UNK
     Route: 048
     Dates: start: 20090323
  12. RIVOTRIL [Concomitant]
     Indication: BREAST CANCER
     Dosage: 0.5 MG, UNK
     Route: 048
     Dates: start: 20090309
  13. CELECOXIB [Concomitant]
     Indication: BREAST CANCER
     Dosage: 200 MG, UNK
     Route: 048
     Dates: start: 20090330

REACTIONS (6)
  - BLOOD CREATININE INCREASED [None]
  - BLOOD UREA INCREASED [None]
  - DEATH [None]
  - DRUG INEFFECTIVE [None]
  - DYSPNOEA [None]
  - RIB FRACTURE [None]
